FAERS Safety Report 15356107 (Version 3)
Quarter: 2018Q3

REPORT INFORMATION
  Report Type: Report from Study
  Country: IL (occurrence: IL)
  Receive Date: 20180906
  Receipt Date: 20180919
  Transmission Date: 20181010
  Serious: Yes (Hospitalization, Other)
  Sender: FDA-Public Use
  Company Number: IL-PFIZER INC-2018197255

PATIENT
  Age: 76 Year
  Sex: Male

DRUGS (2)
  1. SUTENT [Suspect]
     Active Substance: SUNITINIB MALATE
     Dosage: 50 MG, CYCLIC (DAILY; 2 WEEKS ON AND 1 WEEK OFF)
     Route: 048
     Dates: start: 20180722, end: 20180805
  2. SUTENT [Suspect]
     Active Substance: SUNITINIB MALATE
     Indication: RENAL CELL CARCINOMA
     Dosage: 50 MG, CYCLIC (ONCE DAILY; 4 WEEKS ON AND 2 WEEKS OFF)
     Route: 048
     Dates: start: 20180504, end: 20180722

REACTIONS (15)
  - Heart rate increased [Recovered/Resolved]
  - Decreased appetite [Not Recovered/Not Resolved]
  - Back pain [Recovered/Resolved]
  - Neoplasm progression [Not Recovered/Not Resolved]
  - Skin discolouration [Not Recovered/Not Resolved]
  - Dysgeusia [Not Recovered/Not Resolved]
  - Nausea [Not Recovered/Not Resolved]
  - Pulmonary embolism [Recovering/Resolving]
  - Asthenia [Not Recovered/Not Resolved]
  - Diarrhoea [Recovered/Resolved]
  - General physical health deterioration [Recovered/Resolved]
  - Urinary tract infection [Recovered/Resolved]
  - Body temperature increased [Recovered/Resolved]
  - Anal abscess [Recovered/Resolved]
  - Hypertension [Not Recovered/Not Resolved]

NARRATIVE: CASE EVENT DATE: 2018
